FAERS Safety Report 5209003-0 (Version None)
Quarter: 2007Q1

REPORT INFORMATION
  Report Type: 
  Country: None (occurrence: None)
  Receive Date: 20070111
  Receipt Date: 20070111
  Transmission Date: 20070707
  Serious: Yes (Hospitalization)
  Sender: FDA-Public Use
  Company Number: None

PATIENT
  Age: 47 Year
  Sex: Female
  Weight: 81.6475 kg

DRUGS (4)
  1. LISINOPRIL [Suspect]
     Indication: HYPERTENSION
     Dosage: 2.5MG DAILY PO; 2 DAYS IN 2007
     Route: 048
     Dates: start: 20060106, end: 20060108
  2. HYDROCHLOROTHIAZIDE [Concomitant]
  3. NASONEX [Concomitant]
  4. NECON [Concomitant]

REACTIONS (10)
  - ABDOMINAL DISTENSION [None]
  - ABDOMINAL PAIN [None]
  - ANGIOEDEMA [None]
  - ANXIETY [None]
  - BLOOD CHLORIDE DECREASED [None]
  - BLOOD POTASSIUM DECREASED [None]
  - GASTROENTERITIS VIRAL [None]
  - HEART RATE INCREASED [None]
  - NAUSEA [None]
  - VOMITING [None]
